FAERS Safety Report 8493773-2 (Version None)
Quarter: 2012Q3

REPORT INFORMATION
  Report Type: 
  Country: None (occurrence: None)
  Receive Date: 20120706
  Receipt Date: 20120629
  Transmission Date: 20120928
  Serious: Yes (Hospitalization, Other)
  Sender: FDA-Public Use
  Company Number: SK-ABBOTT-12P-260-0945189-00

PATIENT
  Sex: Female
  Weight: 65 kg

DRUGS (3)
  1. HUMIRA [Suspect]
     Indication: RHEUMATOID ARTHRITIS
     Route: 058
     Dates: start: 20120212, end: 20120521
  2. ATROVASTATIN (TULIP) [Suspect]
     Indication: PRODUCT USED FOR UNKNOWN INDICATION
  3. ATROVASTATIN (SORTIS) [Concomitant]
     Indication: PRODUCT USED FOR UNKNOWN INDICATION
     Dosage: 0-0-1

REACTIONS (12)
  - ASTHENIA [None]
  - CEREBRAL ISCHAEMIA [None]
  - CEREBELLAR SYNDROME [None]
  - ARTERIAL THROMBOSIS [None]
  - HEMIPARESIS [None]
  - CEREBROVASCULAR ACCIDENT [None]
  - TREATMENT NONCOMPLIANCE [None]
  - DIZZINESS [None]
  - NAUSEA [None]
  - ABASIA [None]
  - MUSCULAR WEAKNESS [None]
  - DYSPEPSIA [None]
